FAERS Safety Report 8113888 (Version 13)
Quarter: 2014Q1

REPORT INFORMATION
  Report Type: Spontaneous
  Country: US (occurrence: US)
  Receive Date: 20110831
  Receipt Date: 20140109
  Transmission Date: 20141002
  Serious: Yes (Hospitalization, Other)
  Sender: FDA-Public Use
  Company Number: US-BIOGENIDEC-2011BI031492

PATIENT
  Age: 62 Year
  Sex: Female
  Weight: 64 kg

DRUGS (14)
  1. TYSABRI [Suspect]
     Indication: MULTIPLE SCLEROSIS
     Route: 042
  2. TYSABRI [Suspect]
     Indication: MULTIPLE SCLEROSIS
     Route: 042
     Dates: start: 20061013, end: 20110818
  3. ESCITALOPRAM [Concomitant]
  4. NAPROXEN SODIUM [Concomitant]
  5. IBUPROFEN [Concomitant]
  6. HYDROCODONE [Concomitant]
  7. ACETAMINOPHEN [Concomitant]
  8. TIZANADINE [Concomitant]
  9. SIMVASTATIN [Concomitant]
  10. METHYLPHENIDATE [Concomitant]
  11. CYNACOBALAMIN [Concomitant]
  12. DALFAMPRIDINE [Concomitant]
  13. VITAMIN D3 [Concomitant]
  14. ATENOLOL [Concomitant]

REACTIONS (2)
  - Progressive multifocal leukoencephalopathy [Recovered/Resolved]
  - Immune reconstitution inflammatory syndrome [Not Recovered/Not Resolved]
